FAERS Safety Report 15269720 (Version 37)
Quarter: 2022Q2

REPORT INFORMATION
  Report Type: Spontaneous
  Country: CA (occurrence: CA)
  Receive Date: 20180813
  Receipt Date: 20220622
  Transmission Date: 20220721
  Serious: Yes (Hospitalization, Other)
  Sender: FDA-Public Use
  Company Number: CA-CELLTRION INC.-2018CA018685

PATIENT

DRUGS (53)
  1. INFLECTRA [Suspect]
     Active Substance: INFLIXIMAB-DYYB
     Indication: Colitis ulcerative
     Dosage: 5 MG/KG, 0, 2, 6, THEN EVERY 8 WEEKS (WEEK 0 DOSE)
     Route: 042
     Dates: start: 20180220, end: 20180220
  2. INFLECTRA [Suspect]
     Active Substance: INFLIXIMAB-DYYB
     Dosage: 5 MG/KG, 0, 2, 6, THEN EVERY 8 WEEKS (WEEK 2 DOSE)
     Route: 042
     Dates: start: 20180305, end: 20180305
  3. INFLECTRA [Suspect]
     Active Substance: INFLIXIMAB-DYYB
     Dosage: 5 MG/KG, 0, 2, 6, THEN EVERY 8 WEEKS
     Route: 042
     Dates: start: 20180305
  4. INFLECTRA [Suspect]
     Active Substance: INFLIXIMAB-DYYB
     Dosage: 5 MG/KG, 0, 2, 6, THEN EVERY 8 WEEKS (WEEK 6 DOSE)
     Route: 042
     Dates: start: 20180403, end: 20180403
  5. INFLECTRA [Suspect]
     Active Substance: INFLIXIMAB-DYYB
     Dosage: 5 MG/KG, 0, 2, 6, THEN EVERY 8 WEEKS
     Route: 042
     Dates: start: 20180529, end: 20180724
  6. INFLECTRA [Suspect]
     Active Substance: INFLIXIMAB-DYYB
     Dosage: 5 MG/KG, 0, 2, 6, THEN EVERY 8 WEEKS
     Route: 042
     Dates: start: 20180724
  7. INFLECTRA [Suspect]
     Active Substance: INFLIXIMAB-DYYB
     Dosage: 10 MG/KG ONCE (RESCUE DOSE)
     Route: 042
     Dates: start: 20180831
  8. INFLECTRA [Suspect]
     Active Substance: INFLIXIMAB-DYYB
     Dosage: 10 MG/KG ONCE (RESCUE DOSE)
     Route: 042
     Dates: start: 20180831
  9. INFLECTRA [Suspect]
     Active Substance: INFLIXIMAB-DYYB
     Dosage: 10 MG/KG ONCE (RESCUE DOSE)
     Route: 042
     Dates: start: 20180831, end: 20180831
  10. INFLECTRA [Suspect]
     Active Substance: INFLIXIMAB-DYYB
     Dosage: 10 MG/KG, EVERY 6 WEEKS
     Route: 042
     Dates: start: 20181010, end: 20201216
  11. INFLECTRA [Suspect]
     Active Substance: INFLIXIMAB-DYYB
     Dosage: 10 MG/KG, EVERY 6 WEEKS
     Route: 042
     Dates: start: 20181122
  12. INFLECTRA [Suspect]
     Active Substance: INFLIXIMAB-DYYB
     Dosage: 10 MG/KG, EVERY 6 WEEKS
     Route: 042
     Dates: start: 20181122
  13. INFLECTRA [Suspect]
     Active Substance: INFLIXIMAB-DYYB
     Dosage: 10 MG/KG, EVERY 6 WEEKS
     Route: 042
     Dates: start: 20190103
  14. INFLECTRA [Suspect]
     Active Substance: INFLIXIMAB-DYYB
     Dosage: 10 MG/KG, EVERY 6 WEEKS
     Route: 042
     Dates: start: 20190213
  15. INFLECTRA [Suspect]
     Active Substance: INFLIXIMAB-DYYB
     Dosage: 10 MG/KG, EVERY 6 WEEKS
     Route: 042
     Dates: start: 20190327
  16. INFLECTRA [Suspect]
     Active Substance: INFLIXIMAB-DYYB
     Dosage: 10 MG/KG, EVERY 6 WEEKS
     Route: 042
     Dates: start: 20190508
  17. INFLECTRA [Suspect]
     Active Substance: INFLIXIMAB-DYYB
     Dosage: 10 MG/KG, EVERY 6 WEEKS
     Route: 042
     Dates: start: 20190620
  18. INFLECTRA [Suspect]
     Active Substance: INFLIXIMAB-DYYB
     Dosage: 10 MG/KG, EVERY 6 WEEKS
     Route: 042
     Dates: start: 20190801
  19. INFLECTRA [Suspect]
     Active Substance: INFLIXIMAB-DYYB
     Dosage: 10 MG/KG, EVERY 6 WEEKS
     Route: 042
     Dates: start: 20190912
  20. INFLECTRA [Suspect]
     Active Substance: INFLIXIMAB-DYYB
     Dosage: 10 MG/KG, EVERY 6 WEEKS
     Route: 042
     Dates: start: 20191024
  21. INFLECTRA [Suspect]
     Active Substance: INFLIXIMAB-DYYB
     Dosage: 10 MG/KG, EVERY 6 WEEKS
     Route: 042
     Dates: start: 20191205
  22. INFLECTRA [Suspect]
     Active Substance: INFLIXIMAB-DYYB
     Dosage: 10 MG/KG, EVERY 6 WEEKS
     Route: 042
     Dates: start: 20200116
  23. INFLECTRA [Suspect]
     Active Substance: INFLIXIMAB-DYYB
     Dosage: 10 MG/KG, EVERY 6 WEEKS
     Route: 042
     Dates: start: 20200229
  24. INFLECTRA [Suspect]
     Active Substance: INFLIXIMAB-DYYB
     Dosage: 10 MG/KG, EVERY 6 WEEKS
     Route: 042
     Dates: start: 20200229
  25. INFLECTRA [Suspect]
     Active Substance: INFLIXIMAB-DYYB
     Dosage: 10 MG/KG, EVERY 6 WEEKS
     Route: 042
     Dates: start: 20200407
  26. INFLECTRA [Suspect]
     Active Substance: INFLIXIMAB-DYYB
     Dosage: 10 MG/KG, EVERY 6 WEEKS
     Route: 042
     Dates: start: 20200630
  27. INFLECTRA [Suspect]
     Active Substance: INFLIXIMAB-DYYB
     Dosage: 10 MG/KG, EVERY 6 WEEKS
     Route: 042
     Dates: start: 20200814
  28. INFLECTRA [Suspect]
     Active Substance: INFLIXIMAB-DYYB
     Dosage: 10 MG/KG, EVERY 6 WEEKS
     Route: 042
     Dates: start: 20200814
  29. INFLECTRA [Suspect]
     Active Substance: INFLIXIMAB-DYYB
     Dosage: 10 MG/KG, EVERY 6 WEEKS
     Route: 042
     Dates: start: 20200923
  30. INFLECTRA [Suspect]
     Active Substance: INFLIXIMAB-DYYB
     Dosage: 10 MG/KG, EVERY 6 WEEKS
     Route: 042
     Dates: start: 20201109
  31. INFLECTRA [Suspect]
     Active Substance: INFLIXIMAB-DYYB
     Dosage: 10 MG/KG, EVERY 6 WEEKS
     Route: 042
     Dates: start: 20201216
  32. INFLECTRA [Suspect]
     Active Substance: INFLIXIMAB-DYYB
     Dosage: 10 MG/KG, EVERY 6 WEEKS
     Route: 042
     Dates: start: 20210804
  33. INFLECTRA [Suspect]
     Active Substance: INFLIXIMAB-DYYB
     Dosage: 5 MG/KG EVERY 8 WEEK NO INDUCTION
     Route: 042
     Dates: start: 20210804, end: 20220318
  34. INFLECTRA [Suspect]
     Active Substance: INFLIXIMAB-DYYB
     Dosage: 5 MG/KG EVERY 8 WEEKS
     Route: 042
     Dates: start: 20211125
  35. INFLECTRA [Suspect]
     Active Substance: INFLIXIMAB-DYYB
     Dosage: 5 MG/KG EVERY 8 WEEKS
     Route: 042
     Dates: start: 20211125
  36. INFLECTRA [Suspect]
     Active Substance: INFLIXIMAB-DYYB
     Dosage: 5 MG/KG EVERY 8 WEEKS
     Route: 042
     Dates: start: 20220122
  37. INFLECTRA [Suspect]
     Active Substance: INFLIXIMAB-DYYB
     Dosage: 5 MG/KG
     Route: 042
     Dates: start: 20220318
  38. INFLECTRA [Suspect]
     Active Substance: INFLIXIMAB-DYYB
     Dosage: 5 MG/KG EVERY 4 TO 6 WEEKS
     Route: 042
     Dates: start: 20220426
  39. INFLECTRA [Suspect]
     Active Substance: INFLIXIMAB-DYYB
     Dosage: 5 MG/KG EVERY 4 TO 6 WEEKS
     Route: 042
     Dates: start: 20220610
  40. ASPIRIN [Concomitant]
     Active Substance: ASPIRIN
     Dosage: 1 DF
     Route: 065
  41. ALLOPURINOL [Concomitant]
     Active Substance: ALLOPURINOL
     Dosage: 1 DF
     Route: 065
  42. METOPROLOL [Concomitant]
     Active Substance: METOPROLOL
     Dosage: 1 DF
     Route: 065
  43. ASPIRIN [Concomitant]
     Active Substance: ASPIRIN
     Dosage: 1 DF
     Route: 065
  44. CALCIUM [Concomitant]
     Active Substance: CALCIUM
     Dosage: 500 MG, 2X/DAY
     Route: 065
  45. CITALOPRAM [Concomitant]
     Active Substance: CITALOPRAM HYDROBROMIDE
     Dosage: 1 DF
     Route: 065
  46. ESOMEPRAZOLE [Concomitant]
     Active Substance: ESOMEPRAZOLE
     Dosage: 1 DF
     Route: 065
  47. JAMP RAMIPRIL [Concomitant]
     Dosage: 1 DF
     Route: 065
  48. LANTUS [Concomitant]
     Active Substance: INSULIN GLARGINE
     Dosage: 1 DF
     Route: 065
  49. MESALAMINE [Concomitant]
     Active Substance: MESALAMINE
     Dosage: 1 DF
     Route: 065
     Dates: start: 2017
  50. NITROGLYCERIN [Concomitant]
     Active Substance: NITROGLYCERIN
     Dosage: 1 DF, AS NEEDED
     Route: 060
  51. ROSUVASTATIN [Concomitant]
     Active Substance: ROSUVASTATIN
     Dosage: 1 DF
     Route: 065
  52. AMLODIPINE MALEATE [Concomitant]
     Active Substance: AMLODIPINE MALEATE
     Dosage: 1 DF
     Route: 065
  53. TAMSULOSIN [Concomitant]
     Active Substance: TAMSULOSIN
     Dosage: 1 DF
     Route: 065

REACTIONS (31)
  - Fatigue [Unknown]
  - Bradycardia [Unknown]
  - Dizziness [Unknown]
  - Asthenia [Unknown]
  - Arrhythmia [Unknown]
  - Renal cancer [Not Recovered/Not Resolved]
  - Lung neoplasm malignant [Not Recovered/Not Resolved]
  - Lung disorder [Unknown]
  - Condition aggravated [Recovering/Resolving]
  - Ligament rupture [Unknown]
  - Neoplasm recurrence [Not Recovered/Not Resolved]
  - Haematochezia [Unknown]
  - Therapeutic response shortened [Unknown]
  - Inappropriate schedule of product administration [Unknown]
  - Intentional product use issue [Unknown]
  - Off label use [Unknown]
  - Off label use [Unknown]
  - Abdominal pain [Not Recovered/Not Resolved]
  - Anxiety [Unknown]
  - Arthralgia [Unknown]
  - Colitis [Recovering/Resolving]
  - Crying [Unknown]
  - Diarrhoea [Not Recovered/Not Resolved]
  - Depressed mood [Unknown]
  - Flatulence [Not Recovered/Not Resolved]
  - Heart rate decreased [Unknown]
  - Muscle injury [Unknown]
  - Synovial cyst [Unknown]
  - Vision blurred [Unknown]
  - Weight fluctuation [Unknown]
  - Weight decreased [Unknown]

NARRATIVE: CASE EVENT DATE: 20180101
